FAERS Safety Report 8877545 (Version 1)
Quarter: 2012Q4

REPORT INFORMATION
  Report Type: 
  Country: US (occurrence: US)
  Receive Date: 20121024
  Receipt Date: 20121024
  Transmission Date: 20130627
  Serious: No
  Sender: FDA-Public Use
  Company Number: US-B.I. PHARMACEUTICALS,INC./RIDGEFIELD-2012-BP-25422BP

PATIENT
  Age: 65 None
  Sex: Female
  Weight: 91 kg

DRUGS (10)
  1. SPIRIVA [Suspect]
     Indication: BRONCHITIS CHRONIC
     Dosage: 18 mcg
     Route: 055
     Dates: start: 20121010
  2. IPRATROPIUM BROMIDE [Suspect]
     Indication: BRONCHITIS CHRONIC
     Route: 055
     Dates: start: 201208, end: 201209
  3. CLOPIDOGREL [Concomitant]
     Indication: CARDIAC DISORDER
     Dosage: 75 mg
     Route: 048
  4. METHOTREXATE [Concomitant]
     Indication: RHEUMATOID ARTHRITIS
     Dosage: 10 mg
     Route: 048
     Dates: start: 201207
  5. OMEPRAZOLE [Concomitant]
     Indication: GASTROOESOPHAGEAL REFLUX DISEASE
     Route: 048
  6. BABY ASPIRIN [Concomitant]
     Indication: CARDIAC DISORDER
     Dosage: 81 mg
     Route: 048
  7. LISINOPRIL [Concomitant]
     Indication: CARDIAC DISORDER
     Dosage: 10 mg
     Route: 048
  8. METOPROLOL [Concomitant]
     Indication: CARDIAC DISORDER
     Dosage: 25 mg
     Route: 048
  9. ATORVASTATIN [Concomitant]
     Indication: BLOOD CHOLESTEROL INCREASED
     Dosage: 80 mg
     Route: 048
  10. AMLODIPINE [Concomitant]
     Indication: CARDIAC DISORDER
     Dosage: 5 mg
     Route: 048

REACTIONS (3)
  - Abdominal pain [Recovered/Resolved]
  - Flatulence [Recovered/Resolved]
  - Abdominal pain [Recovered/Resolved]
